FAERS Safety Report 8009537-X (Version None)
Quarter: 2011Q4

REPORT INFORMATION
  Report Type: 
  Country: None (occurrence: None)
  Receive Date: 20111227
  Receipt Date: 20111216
  Transmission Date: 20120403
  Serious: Yes (Hospitalization, Other)
  Sender: FDA-Public Use
  Company Number: US-ASTRAZENECA-2011SE76227

PATIENT
  Sex: Female

DRUGS (5)
  1. CLOZAPINE [Concomitant]
  2. SEROQUEL [Suspect]
     Route: 048
  3. CLOZAPINE [Concomitant]
  4. SEROQUEL [Suspect]
     Route: 048
  5. ZYPREXA [Concomitant]

REACTIONS (8)
  - DEPRESSION [None]
  - BLOOD CHOLESTEROL INCREASED [None]
  - PSYCHOTIC DISORDER [None]
  - INTENTIONAL SELF-INJURY [None]
  - OVERDOSE [None]
  - ADVERSE DRUG REACTION [None]
  - METABOLIC DISORDER [None]
  - WEIGHT INCREASED [None]
